FAERS Safety Report 7048871-7 (Version None)
Quarter: 2010Q4

REPORT INFORMATION
  Report Type: 
  Country: None (occurrence: None)
  Receive Date: 20101012
  Receipt Date: 20100924
  Transmission Date: 20110411
  Serious: Yes (Hospitalization, Other)
  Sender: FDA-Public Use
  Company Number: 2010004103

PATIENT
  Age: 80 Year
  Sex: Male

DRUGS (1)
  1. TARCEVA [Suspect]
     Indication: NON-SMALL CELL LUNG CANCER
     Dosage: (150 MG, QD), ORAL
     Route: 048
     Dates: start: 20100603, end: 20100826

REACTIONS (5)
  - CARDIOVASCULAR DISORDER [None]
  - DYSPNOEA [None]
  - LOWER GASTROINTESTINAL HAEMORRHAGE [None]
  - RASH GENERALISED [None]
  - ULCER [None]
